FAERS Safety Report 20143182 (Version 1)
Quarter: 2021Q4

REPORT INFORMATION
  Report Type: Spontaneous
  Country: AT (occurrence: AT)
  Receive Date: 20211203
  Receipt Date: 20211203
  Transmission Date: 20220304
  Serious: Yes (Other)
  Sender: FDA-Public Use
  Company Number: AT-ABBVIE-21K-009-4177721-00

PATIENT
  Age: 27 Year
  Sex: Female

DRUGS (9)
  1. VALPROIC ACID [Suspect]
     Active Substance: VALPROIC ACID
     Indication: Affective disorder
     Route: 065
  2. PAROXETINE HYDROCHLORIDE [Interacting]
     Active Substance: PAROXETINE HYDROCHLORIDE
     Indication: Obsessive thoughts
     Route: 065
  3. PAROXETINE HYDROCHLORIDE [Interacting]
     Active Substance: PAROXETINE HYDROCHLORIDE
     Indication: Depressed mood
  4. PAROXETINE HYDROCHLORIDE [Interacting]
     Active Substance: PAROXETINE HYDROCHLORIDE
     Indication: Fear
  5. SERTRALINE [Suspect]
     Active Substance: SERTRALINE HYDROCHLORIDE
     Indication: Product used for unknown indication
     Route: 065
  6. SERTRALINE [Suspect]
     Active Substance: SERTRALINE HYDROCHLORIDE
     Route: 065
  7. RISPERIDONE [Interacting]
     Active Substance: RISPERIDONE
     Indication: Obsessive thoughts
     Route: 065
  8. RISPERIDONE [Interacting]
     Active Substance: RISPERIDONE
     Indication: Fear
  9. RISPERIDONE [Interacting]
     Active Substance: RISPERIDONE
     Indication: Depressed mood

REACTIONS (11)
  - Hyperprolactinaemia [Unknown]
  - Amenorrhoea [Unknown]
  - Decreased activity [Unknown]
  - Antipsychotic drug level increased [Unknown]
  - Flat affect [Unknown]
  - Hypomania [Unknown]
  - Agitation [Unknown]
  - Libido increased [Unknown]
  - Generalised anxiety disorder [Unknown]
  - Drug ineffective [Unknown]
  - Treatment noncompliance [Unknown]
